FAERS Safety Report 19710967 (Version 1)
Quarter: 2021Q3

REPORT INFORMATION
  Report Type: Report from Study
  Country: MX (occurrence: MX)
  Receive Date: 20210816
  Receipt Date: 20210816
  Transmission Date: 20211014
  Serious: Yes (Death, Other)
  Sender: FDA-Public Use
  Company Number: MX-SEATTLE GENETICS-2021SGN04216

PATIENT
  Sex: Male

DRUGS (1)
  1. BRENTUXIMAB VEDOTIN?MPI [Suspect]
     Active Substance: BRENTUXIMAB VEDOTIN
     Indication: HODGKIN^S DISEASE
     Dosage: 135 MILLIGRAM
     Route: 042
     Dates: start: 20210423, end: 20210811

REACTIONS (1)
  - Death [Fatal]
